FAERS Safety Report 4306306-9 (Version None)
Quarter: 2004Q1

REPORT INFORMATION
  Report Type: 
  Country: None (occurrence: None)
  Receive Date: 20040225
  Receipt Date: 20030514
  Transmission Date: 20041129
  Serious: Yes (Hospitalization, Other)
  Sender: FDA-Public Use
  Company Number: US-BRISTOL-MYERS SQUIBB COMPANY-12276606

PATIENT
  Age: 2 Year
  Sex: Male
  Weight: 16 kg

DRUGS (1)
  1. EXCEDRIN (MIGRAINE) [Suspect]
     Route: 048
     Dates: start: 20030511, end: 20030511

REACTIONS (1)
  - ACCIDENTAL OVERDOSE [None]
